FAERS Safety Report 7898178-0 (Version None)
Quarter: 2011Q4

REPORT INFORMATION
  Report Type: 
  Country: None (occurrence: None)
  Receive Date: 20111107
  Receipt Date: 20111027
  Transmission Date: 20120403
  Serious: Yes (Hospitalization, Congenital Anomaly)
  Sender: FDA-Public Use
  Company Number: US-GLAXOSMITHKLINE-A0743110A

PATIENT
  Sex: Male
  Weight: 2 kg

DRUGS (2)
  1. STEROIDS (UNKNOWN) [Concomitant]
     Route: 064
  2. PAXIL [Suspect]
     Indication: ANXIETY
     Dosage: 20MG UNKNOWN
     Route: 064

REACTIONS (11)
  - FALLOT'S TETRALOGY [None]
  - PATENT DUCTUS ARTERIOSUS [None]
  - VENTRICULAR SEPTAL DEFECT [None]
  - HYPOTHALAMO-PITUITARY DISORDER [None]
  - LUNG DISORDER [None]
  - DEVELOPMENTAL DELAY [None]
  - ATRIAL SEPTAL DEFECT [None]
  - CONGENITAL EYE DISORDER [None]
  - CEREBRAL PALSY [None]
  - BONE DISORDER [None]
  - FOETAL EXPOSURE DURING PREGNANCY [None]
